FAERS Safety Report 16850946 (Version 1)
Quarter: 2019Q3

REPORT INFORMATION
  Report Type: Spontaneous
  Country: JP (occurrence: JP)
  Receive Date: 20190925
  Receipt Date: 20190925
  Transmission Date: 20191005
  Serious: Yes (Other)
  Sender: FDA-Public Use
  Company Number: JP-PFIZER INC-2019404487

PATIENT
  Age: 43 Year
  Sex: Female

DRUGS (1)
  1. DALACIN S 600MG [Suspect]
     Active Substance: CLINDAMYCIN PHOSPHATE
     Dosage: UNK
     Dates: start: 201807, end: 201807

REACTIONS (1)
  - Drug eruption [Unknown]
